FAERS Safety Report 10094579 (Version 1)
Quarter: 2014Q2

REPORT INFORMATION
  Report Type: Spontaneous
  Country: US (occurrence: None)
  Receive Date: 20140421
  Receipt Date: 20140421
  Transmission Date: 20141212
  Serious: Yes (Disabling, Other)
  Sender: FDA-Public Use
  Company Number: None

PATIENT
  Age: 27 Year
  Sex: Female

DRUGS (1)
  1. AMITIZA [Suspect]
     Indication: CONSTIPATION
     Route: 048
     Dates: start: 20130701, end: 20140220

REACTIONS (3)
  - Pelvic pain [None]
  - Back pain [None]
  - Endometriosis [None]
